FAERS Safety Report 7228184-0 (Version None)
Quarter: 2011Q1

REPORT INFORMATION
  Report Type: 
  Country: None (occurrence: None)
  Receive Date: 20110114
  Receipt Date: 20110106
  Transmission Date: 20110831
  Serious: Yes (Other)
  Sender: FDA-Public Use
  Company Number: AU-PFIZER INC-2010144011

PATIENT
  Sex: Male
  Weight: 74 kg

DRUGS (1)
  1. PRISTIQ [Suspect]
     Indication: DEPRESSION
     Dosage: 50 MG, NOCTE
     Route: 048
     Dates: end: 20100101

REACTIONS (2)
  - SLEEP TERROR [None]
  - PERSONALITY CHANGE [None]
